FAERS Safety Report 9790877 (Version 1)
Quarter: 2013Q4

REPORT INFORMATION
  Report Type: Spontaneous
  Country: DK (occurrence: NL)
  Receive Date: 20131231
  Receipt Date: 20131231
  Transmission Date: 20140711
  Serious: Yes (Death)
  Sender: FDA-Public Use
  Company Number: NL-FRI-1000052567

PATIENT
  Age: 91 Year
  Sex: Female

DRUGS (16)
  1. CITALOPRAM ORAL SOLUTION [Suspect]
     Indication: ANXIETY
     Route: 048
     Dates: start: 2013, end: 20131205
  2. TRAMADOL [Interacting]
     Indication: PAIN
     Dosage: 100 MG
     Route: 048
     Dates: start: 20131205, end: 20131205
  3. ARTELAC [Concomitant]
     Dosage: 4 GRAM
     Route: 047
  4. LANSOPRAZOL [Concomitant]
     Dosage: 30 MG
     Route: 048
  5. ARCOXIA [Concomitant]
     Dosage: 90 MG
     Route: 048
  6. FRAXIPARINE [Concomitant]
  7. HYDROXOCOBALAMINE [Concomitant]
  8. POVIDON [Concomitant]
     Dosage: 4 DF
     Route: 047
  9. METAMUCIL [Concomitant]
     Dosage: 10 MG
  10. OMEPRAZOL [Concomitant]
     Dosage: 20 MG
  11. DOMPERIDON [Concomitant]
     Dosage: 20 MG
  12. PARACETAMOL [Concomitant]
     Dosage: 2000 MG
  13. TEMAZEPAM [Concomitant]
     Dosage: 10 MG
  14. HALDOL [Concomitant]
     Dosage: 0.5 MG ONCE
     Dates: start: 20131204
  15. ISPAGHULA [Concomitant]
  16. ARTIFICIAL TEARS [Concomitant]

REACTIONS (2)
  - Serotonin syndrome [Fatal]
  - Drug interaction [Fatal]
